FAERS Safety Report 4456990-4 (Version None)
Quarter: 2004Q3

REPORT INFORMATION
  Report Type: 
  Country: None (occurrence: None)
  Receive Date: 20040923
  Receipt Date: 20040712
  Transmission Date: 20050211
  Serious: Yes (Other)
  Sender: FDA-Public Use
  Company Number: A0518374A

PATIENT
  Sex: Female
  Weight: 107.3 kg

DRUGS (1)
  1. IMITREX [Suspect]
     Indication: HEADACHE
     Route: 065

REACTIONS (6)
  - DIZZINESS [None]
  - DRUG INEFFECTIVE [None]
  - HEADACHE [None]
  - MEDICATION ERROR [None]
  - NAUSEA [None]
  - VISUAL ACUITY REDUCED [None]
